FAERS Safety Report 4381461-3 (Version None)
Quarter: 2004Q2

REPORT INFORMATION
  Report Type: 
  Country: None (occurrence: None)
  Receive Date: 20040618
  Receipt Date: 20040618
  Transmission Date: 20050107
  Serious: Yes (Hospitalization)
  Sender: FDA-Public Use
  Company Number: None

PATIENT
  Age: 83 Year
  Sex: Female
  Weight: 63.9572 kg

DRUGS (2)
  1. CISPLATIN [Suspect]
     Dosage: IV X ONE , 50 MG
     Route: 042
     Dates: start: 20040526
  2. IRINOTECAN 65 MG/M3 [Suspect]
     Dosage: IV X ONE, 109 MG
     Route: 042
     Dates: start: 20040526

REACTIONS (3)
  - CEREBROVASCULAR ACCIDENT [None]
  - DIARRHOEA [None]
  - FEBRILE NEUTROPENIA [None]
